FAERS Safety Report 4302122-2 (Version None)
Quarter: 2004Q1

REPORT INFORMATION
  Report Type: 
  Country: None (occurrence: None)
  Receive Date: 20040220
  Receipt Date: 20040209
  Transmission Date: 20041129
  Serious: Yes (Other)
  Sender: FDA-Public Use
  Company Number: 2004198219US

PATIENT
  Age: 60 Year
  Sex: Female

DRUGS (1)
  1. HEPARIN SODIUM INJECTION [Suspect]
     Indication: THROMBOSIS PROPHYLAXIS

REACTIONS (4)
  - ARTERIAL THROMBOSIS [None]
  - DISEASE RECURRENCE [None]
  - HAEMOTHORAX [None]
  - SURGICAL PROCEDURE REPEATED [None]
